FAERS Safety Report 14433756 (Version 2)
Quarter: 2018Q1

REPORT INFORMATION
  Report Type: Spontaneous
  Country: PH (occurrence: PH)
  Receive Date: 20180124
  Receipt Date: 20180215
  Transmission Date: 20180509
  Serious: Yes (Other)
  Sender: FDA-Public Use
  Company Number: PH-EISAI MEDICAL RESEARCH-EC-2018-035365

PATIENT
  Age: 4 Year
  Sex: Male

DRUGS (8)
  1. FYCOMPA [Suspect]
     Active Substance: PERAMPANEL
     Dosage: 1.5 MG IN AM, 1 MG IN PM
     Route: 048
     Dates: start: 201801, end: 2018
  2. FYCOMPA [Suspect]
     Active Substance: PERAMPANEL
     Indication: EPILEPSY
     Dosage: UNKNOWN
     Route: 048
     Dates: start: 201711, end: 201711
  3. PHENOBARBITAL. [Concomitant]
     Active Substance: PHENOBARBITAL
     Indication: EPILEPSY
     Dosage: UNKNOWN
     Route: 048
  4. STEROIDS [Concomitant]
     Active Substance: UNSPECIFIED INGREDIENT
     Indication: EPILEPSY
     Dosage: UNKNOWN
     Route: 048
  5. FYCOMPA [Suspect]
     Active Substance: PERAMPANEL
     Route: 048
     Dates: start: 2018
  6. FYCOMPA [Suspect]
     Active Substance: PERAMPANEL
     Route: 048
     Dates: start: 201711, end: 201801
  7. LEVETIRACETAM. [Concomitant]
     Active Substance: LEVETIRACETAM
     Indication: EPILEPSY
     Dosage: UNKNOWN
     Route: 048
     Dates: end: 201801
  8. LEVETIRACETAM. [Concomitant]
     Active Substance: LEVETIRACETAM
     Dosage: DOSE INCREASED
     Route: 048
     Dates: start: 201801

REACTIONS (2)
  - Drug-induced liver injury [Recovered/Resolved]
  - Drug administered to patient of inappropriate age [Unknown]

NARRATIVE: CASE EVENT DATE: 201801
